FAERS Safety Report 23260426 (Version 1)
Quarter: 2023Q4

REPORT INFORMATION
  Report Type: Spontaneous
  Country: US (occurrence: US)
  Receive Date: 20231205
  Receipt Date: 20231205
  Transmission Date: 20240109
  Serious: No
  Sender: FDA-Public Use
  Company Number: US-AMGEN-USASP2023215168

PATIENT
  Sex: Female

DRUGS (1)
  1. PROLIA [Suspect]
     Active Substance: DENOSUMAB
     Indication: Osteoporosis postmenopausal
     Dosage: 60 MICROGRAM, Q6MO
     Route: 065
     Dates: start: 2023

REACTIONS (3)
  - Gait disturbance [Unknown]
  - Back pain [Unknown]
  - Off label use [Unknown]
